FAERS Safety Report 13600467 (Version 2)
Quarter: 2017Q2

REPORT INFORMATION
  Report Type: Spontaneous
  Country: US (occurrence: US)
  Receive Date: 20170601
  Receipt Date: 20170621
  Transmission Date: 20170830
  Serious: No
  Sender: FDA-Public Use
  Company Number: US-PFIZER INC-2017236036

PATIENT
  Age: 67 Year
  Sex: Female
  Weight: 60 kg

DRUGS (16)
  1. XIFAXAN [Concomitant]
     Active Substance: RIFAXIMIN
     Indication: GASTROINTESTINAL INFECTION
     Dosage: 550 MG THREE TIMES A DAY
  2. GENOTROPIN MQ [Suspect]
     Active Substance: SOMATROPIN
     Indication: HORMONE REPLACEMENT THERAPY
     Dosage: 0.2 MG INJECTION UNDER THE SKIN ONCE A DAY
     Route: 058
     Dates: end: 201706
  3. LIOTHYRONINE [Concomitant]
     Active Substance: LIOTHYRONINE
     Indication: THYROID THERAPY
     Dosage: 10 UG, 2X/DAY (5MCG, 2 IN THE MORNING AND 2 AT NIGHT)
  4. GAMUNEX-C [Concomitant]
     Active Substance: HUMAN IMMUNOGLOBULIN G
     Indication: IMMUNE SYSTEM DISORDER
     Dosage: 10 GRAMS IV EVERY TWO WEEKS
     Route: 042
  5. LEVOTHYROXINE. [Concomitant]
     Active Substance: LEVOTHYROXINE
     Indication: THYROID DISORDER
     Dosage: 100 MCG IN THE MORNING
  6. CLONAZEPAM. [Concomitant]
     Active Substance: CLONAZEPAM
     Indication: RESTLESS LEGS SYNDROME
     Dosage: 1 MG, 3X/DAY
  7. CLONAZEPAM. [Concomitant]
     Active Substance: CLONAZEPAM
     Indication: SLEEP DISORDER
  8. VITAMIN B12 [Concomitant]
     Active Substance: CYANOCOBALAMIN
     Indication: CHRONIC FATIGUE SYNDROME
     Dosage: 2 ML, WEEKLY
  9. OXYCODONE [Concomitant]
     Active Substance: OXYCODONE
     Indication: PAIN
     Dosage: 20 MG, DAILY
     Dates: start: 2012
  10. VALACICLOVIR [Concomitant]
     Active Substance: VALACYCLOVIR HYDROCHLORIDE
     Indication: VIRAL INFECTION
     Dosage: 500 MG TWICE A DAY
  11. TRAZODONE [Concomitant]
     Active Substance: TRAZODONE HYDROCHLORIDE
     Indication: SLEEP DISORDER
     Dosage: 150 MG AT BEDTIME
     Dates: start: 2000
  12. LINZESS [Concomitant]
     Active Substance: LINACLOTIDE
     Indication: IRRITABLE BOWEL SYNDROME
     Dosage: 290 UG, 1X/DAY, (ONCE A DAY IN THE MORNING ON AN EMPTY STOMACH)
  13. VITAMIN B12 [Concomitant]
     Active Substance: CYANOCOBALAMIN
     Indication: ASTHENIA
  14. GENOTROPIN MQ [Suspect]
     Active Substance: SOMATROPIN
     Indication: ASTHENIA
  15. GENOTROPIN MQ [Suspect]
     Active Substance: SOMATROPIN
     Indication: CHRONIC FATIGUE SYNDROME
     Dosage: 0.2 MG PRE-FILLED SYRINGES INJECTION UNDER SKIN ONCE A DAY
     Route: 058
     Dates: end: 201706
  16. VENLAFAXINE [Concomitant]
     Active Substance: VENLAFAXINE HYDROCHLORIDE
     Indication: ANTIDEPRESSANT THERAPY
     Dosage: 37.5 MG, 1X/DAY

REACTIONS (4)
  - Dizziness [Unknown]
  - Drug dose omission [Unknown]
  - Malaise [Unknown]
  - Somnolence [Unknown]

NARRATIVE: CASE EVENT DATE: 201705
